FAERS Safety Report 7627166-4 (Version None)
Quarter: 2011Q3

REPORT INFORMATION
  Report Type: 
  Country: None (occurrence: None)
  Receive Date: 20110721
  Receipt Date: 20110715
  Transmission Date: 20111222
  Serious: Yes (Other)
  Sender: FDA-Public Use
  Company Number: BR-BAYER-2011-062823

PATIENT
  Age: 35 Year
  Sex: Female

DRUGS (1)
  1. MIRENA [Suspect]
     Indication: ENDOMETRIOSIS
     Dosage: 20 ?G, CONT
     Route: 015
     Dates: start: 20090101

REACTIONS (1)
  - CEREBROVASCULAR ACCIDENT [None]
